FAERS Safety Report 19870157 (Version 11)
Quarter: 2022Q1

REPORT INFORMATION
  Report Type: Report from Study
  Country: US (occurrence: US)
  Receive Date: 20210922
  Receipt Date: 20220324
  Transmission Date: 20220424
  Serious: Yes (Other)
  Sender: FDA-Public Use
  Company Number: NVSC2021US214568

PATIENT
  Age: 61 Year
  Sex: Male

DRUGS (4)
  1. ENTRESTO [Suspect]
     Active Substance: SACUBITRIL\VALSARTAN
     Indication: Product used for unknown indication
     Dosage: 1 DOSAGE FORM, BID
     Route: 048
     Dates: start: 2019
  2. ENTRESTO [Suspect]
     Active Substance: SACUBITRIL\VALSARTAN
     Dosage: UNK
     Route: 065
  3. ENTRESTO [Suspect]
     Active Substance: SACUBITRIL\VALSARTAN
     Dosage: 1 DOSAGE FORM, BID
     Route: 048
  4. ASPIRIN [Concomitant]
     Active Substance: ASPIRIN
     Indication: Hypertension
     Dosage: UNK
     Route: 065
     Dates: end: 20211004

REACTIONS (17)
  - COVID-19 pneumonia [Recovered/Resolved with Sequelae]
  - Angina pectoris [Unknown]
  - Cataract [Unknown]
  - Myocardial infarction [Unknown]
  - Eye haemorrhage [Recovering/Resolving]
  - Blood glucose decreased [Unknown]
  - Intraocular haematoma [Recovering/Resolving]
  - Dyspnoea [Unknown]
  - Malaise [Unknown]
  - COVID-19 [Recovered/Resolved with Sequelae]
  - Feeling abnormal [Recovering/Resolving]
  - Headache [Recovering/Resolving]
  - Weight increased [Unknown]
  - Ocular hyperaemia [Recovering/Resolving]
  - Nasal congestion [Unknown]
  - Blood cholesterol increased [Unknown]
  - Cough [Unknown]

NARRATIVE: CASE EVENT DATE: 20210401
